FAERS Safety Report 6785518-9 (Version None)
Quarter: 2010Q2

REPORT INFORMATION
  Report Type: 
  Country: None (occurrence: None)
  Receive Date: 20100623
  Receipt Date: 20100609
  Transmission Date: 20101027
  Serious: Yes (Life-Threatening, Hospitalization)
  Sender: FDA-Public Use
  Company Number: GB-RANBAXY-2010RR-34798

PATIENT
  Age: 2 Month
  Sex: Female

DRUGS (1)
  1. PARACETAMOL [Suspect]
     Indication: PYREXIA

REACTIONS (3)
  - GRAND MAL CONVULSION [None]
  - OVERDOSE [None]
  - POISONING [None]
